FAERS Safety Report 17728616 (Version 3)
Quarter: 2020Q2

REPORT INFORMATION
  Report Type: Spontaneous
  Country: IT (occurrence: IT)
  Receive Date: 20200430
  Receipt Date: 20200630
  Transmission Date: 20200714
  Serious: Yes (Death, Other)
  Sender: FDA-Public Use
  Company Number: NVSC2020IT115770

PATIENT
  Age: 49 Year
  Sex: Male

DRUGS (13)
  1. CAPECITABINE. [Suspect]
     Active Substance: CAPECITABINE
     Indication: NEUROPATHY PERIPHERAL
     Dosage: UNK, CYCLIC FOR 8 CYCLES
     Route: 065
  2. GEMCITABINE. [Suspect]
     Active Substance: GEMCITABINE
     Indication: ACINAR CELL CARCINOMA OF PANCREAS
     Dosage: UNK, CYCLIC, 8 CYCLES WITH CAPECITABINE
     Route: 065
  3. OXALIPLATIN. [Suspect]
     Active Substance: OXALIPLATIN
     Indication: METASTASES TO LIVER
  4. GEMCITABINE. [Suspect]
     Active Substance: GEMCITABINE
     Indication: PANCREATIC CARCINOMA
     Dosage: UNK
     Route: 065
     Dates: start: 201107, end: 201211
  5. IRINOTECAN [Suspect]
     Active Substance: IRINOTECAN
     Indication: PANCREATIC CARCINOMA
  6. CAPECITABINE. [Suspect]
     Active Substance: CAPECITABINE
     Indication: ACINAR CELL CARCINOMA OF PANCREAS
     Dosage: 2000 MG/M2 (ON DAYS 1 TO 15 EVERY 21 DAYS)
     Route: 065
     Dates: start: 201211
  7. CAPECITABINE. [Suspect]
     Active Substance: CAPECITABINE
     Indication: PANCREATIC CARCINOMA
     Dosage: UNK (ANOTHER 8 CYCLES)
     Route: 065
  8. OXALIPLATIN. [Suspect]
     Active Substance: OXALIPLATIN
     Indication: ACINAR CELL CARCINOMA OF PANCREAS
     Dosage: UNK
     Route: 065
     Dates: end: 200910
  9. OXALIPLATIN. [Suspect]
     Active Substance: OXALIPLATIN
     Indication: PANCREATIC CARCINOMA
  10. IRINOTECAN [Suspect]
     Active Substance: IRINOTECAN
     Indication: ACINAR CELL CARCINOMA OF PANCREAS
     Dosage: 200 MG/M2 (ON DAY 1)
     Route: 065
  11. GEMCITABINE. [Suspect]
     Active Substance: GEMCITABINE
     Indication: METASTASES TO LIVER
     Dosage: UNK, 4 CYCLES AFTER REINTRODUCTION WITH CAPECITABINE
     Route: 065
  12. GEMCITABINE. [Suspect]
     Active Substance: GEMCITABINE
     Dosage: UNK (REINTRODUCED)
     Route: 065
  13. CAPECITABINE. [Suspect]
     Active Substance: CAPECITABINE
     Indication: METASTASES TO LIVER
     Dosage: UNK
     Route: 065
     Dates: start: 201507

REACTIONS (9)
  - Bone marrow failure [Unknown]
  - Product use in unapproved indication [Unknown]
  - Anaemia [Unknown]
  - Bone marrow toxicity [Unknown]
  - Therapy partial responder [Unknown]
  - Disease progression [Unknown]
  - Neuropathy peripheral [Unknown]
  - Therapeutic product effect incomplete [Unknown]
  - Thrombocytopenia [Unknown]
